FAERS Safety Report 9246306 (Version 1)
Quarter: 2013Q2

REPORT INFORMATION
  Report Type: Report from Study
  Country: ES (occurrence: ES)
  Receive Date: 20130422
  Receipt Date: 20130422
  Transmission Date: 20140414
  Serious: Yes (Other)
  Sender: FDA-Public Use
  Company Number: PHHY2013ES036997

PATIENT
  Age: 52 Year
  Sex: Male
  Weight: 114 kg

DRUGS (6)
  1. TACROLIMUS [Suspect]
     Dosage: 5 MG, EVERY 24 HOUR
     Route: 048
     Dates: start: 20121101, end: 20121110
  2. MYCOPHENOLATE MOFETIL [Suspect]
     Dosage: 1000 MG, EVERY 12 HRS
     Route: 048
     Dates: start: 20121101, end: 20121105
  3. ALPROSTADIL [Concomitant]
     Indication: PROPHYLAXIS
     Dosage: UNK
     Route: 042
     Dates: start: 20121101, end: 20121108
  4. MEROPENEM [Concomitant]
     Indication: PROPHYLAXIS
     Dosage: 1 G, EVERY 8 HOUR
     Route: 042
     Dates: start: 20121101, end: 20121113
  5. EVEROLIMUS [Concomitant]
     Dosage: UNK
  6. METHYLPREDNISOLONE [Concomitant]
     Dosage: UNK

REACTIONS (3)
  - Osmotic demyelination syndrome [Unknown]
  - Neurotoxicity [Recovered/Resolved with Sequelae]
  - Pancytopenia [Recovered/Resolved]
